FAERS Safety Report 6635380-X (Version None)
Quarter: 2010Q1

REPORT INFORMATION
  Report Type: 
  Country: None (occurrence: None)
  Receive Date: 20100311
  Receipt Date: 20100311
  Transmission Date: 20100710
  Serious: Yes (Other)
  Sender: FDA-Public Use
  Company Number: None

PATIENT
  Age: 53 Year
  Sex: Female
  Weight: 60.782 kg

DRUGS (1)
  1. BONIVA [Suspect]

REACTIONS (5)
  - BACK PAIN [None]
  - IMPAIRED WORK ABILITY [None]
  - MOVEMENT DISORDER [None]
  - PAIN [None]
  - QUALITY OF LIFE DECREASED [None]
